FAERS Safety Report 19360346 (Version 2)
Quarter: 2022Q2

REPORT INFORMATION
  Report Type: Spontaneous
  Country: US (occurrence: US)
  Receive Date: 20210601
  Receipt Date: 20220505
  Transmission Date: 20220721
  Serious: No
  Sender: FDA-Public Use
  Company Number: US-PFIZER INC-2021390860

PATIENT
  Age: 22 Year
  Sex: Male
  Weight: 107 kg

DRUGS (3)
  1. XELJANZ [Suspect]
     Active Substance: TOFACITINIB CITRATE
     Indication: Crohn^s disease
     Dosage: 10 MG, 2X/DAY
     Route: 048
     Dates: start: 20201010
  2. XELJANZ [Suspect]
     Active Substance: TOFACITINIB CITRATE
     Indication: Colitis ulcerative
  3. XELJANZ [Suspect]
     Active Substance: TOFACITINIB CITRATE
     Indication: Gastrointestinal inflammation

REACTIONS (3)
  - Drug ineffective for unapproved indication [Unknown]
  - Muscle spasms [Unknown]
  - Therapeutic product effect incomplete [Unknown]
